FAERS Safety Report 9239716 (Version 3)
Quarter: 2015Q1

REPORT INFORMATION
  Report Type: Spontaneous
  Country: US (occurrence: US)
  Receive Date: 20130418
  Receipt Date: 20150313
  Transmission Date: 20150721
  Serious: No
  Sender: FDA-Public Use
  Company Number: US-009507513-1304USA008321

PATIENT
  Sex: Male

DRUGS (1)
  1. PROPECIA [Suspect]
     Active Substance: FINASTERIDE
     Indication: ALOPECIA
     Dosage: 1 MG, QD
     Route: 048
     Dates: start: 20011002, end: 20120323

REACTIONS (20)
  - Anxiety [Not Recovered/Not Resolved]
  - Sexual dysfunction [Not Recovered/Not Resolved]
  - Blood testosterone decreased [Unknown]
  - Sleep disorder [Unknown]
  - Vitamin D deficiency [Unknown]
  - Cognitive disorder [Not Recovered/Not Resolved]
  - Disturbance in sexual arousal [Unknown]
  - Headache [Not Recovered/Not Resolved]
  - Syncope [Unknown]
  - Rhinoplasty [Unknown]
  - Tonsillectomy [Unknown]
  - Tinnitus [Unknown]
  - Decreased appetite [Unknown]
  - Insomnia [Not Recovered/Not Resolved]
  - Libido decreased [Unknown]
  - Eye pain [Unknown]
  - Disturbance in attention [Unknown]
  - Erectile dysfunction [Unknown]
  - Depression [Not Recovered/Not Resolved]
  - Rhinitis allergic [Unknown]

NARRATIVE: CASE EVENT DATE: 200301
